FAERS Safety Report 9859864 (Version 1)
Quarter: 2014Q1

REPORT INFORMATION
  Report Type: Spontaneous
  Country: US (occurrence: MX)
  Receive Date: 20140131
  Receipt Date: 20140131
  Transmission Date: 20141002
  Serious: Yes (Hospitalization)
  Sender: FDA-Public Use
  Company Number: MX-FRI-1000053304

PATIENT
  Age: 47 Year
  Sex: Female

DRUGS (3)
  1. ROFLUMILAST [Suspect]
     Indication: ASTHMA
  2. COMBIVENT [Concomitant]
  3. ONBRIZE [Concomitant]

REACTIONS (4)
  - Abdominal pain upper [Unknown]
  - Dry skin [Unknown]
  - Muscle spasms [Unknown]
  - Investigation [Unknown]
